FAERS Safety Report 24878032 (Version 8)
Quarter: 2025Q2

REPORT INFORMATION
  Report Type: Spontaneous
  Country: AR (occurrence: AR)
  Receive Date: 20250123
  Receipt Date: 20250620
  Transmission Date: 20250717
  Serious: Yes (Other)
  Sender: MYLAN
  Company Number: AR-MYLANLABS-2024M1046402

PATIENT
  Age: 40 Year
  Sex: Male

DRUGS (2)
  1. CLOZAPINE [Suspect]
     Active Substance: CLOZAPINE
     Indication: Schizophrenia
  2. CLOZAPINE [Suspect]
     Active Substance: CLOZAPINE
     Dosage: 150 MILLIGRAM, QD (PER DAY)

REACTIONS (3)
  - Leukopenia [Recovering/Resolving]
  - Neutropenia [Recovered/Resolved]
  - Monocyte count increased [Recovered/Resolved]

NARRATIVE: CASE EVENT DATE: 20240515
